FAERS Safety Report 7080182-6 (Version None)
Quarter: 2010Q4

REPORT INFORMATION
  Report Type: 
  Country: None (occurrence: None)
  Receive Date: 20101103
  Receipt Date: 20101025
  Transmission Date: 20110411
  Serious: No
  Sender: FDA-Public Use
  Company Number: US-BIOGENIDEC-2010BI010594

PATIENT
  Age: 58 Year
  Sex: Female

DRUGS (1)
  1. TYSABRI [Suspect]
     Indication: MULTIPLE SCLEROSIS
     Route: 042
     Dates: start: 20100202

REACTIONS (6)
  - ARTHRITIS [None]
  - FATIGUE [None]
  - MUSCLE SPASMS [None]
  - MUSCLE SWELLING [None]
  - MUSCULAR WEAKNESS [None]
  - MYALGIA [None]
